FAERS Safety Report 7491956-1 (Version None)
Quarter: 2011Q2

REPORT INFORMATION
  Report Type: 
  Country: None (occurrence: None)
  Receive Date: 20110519
  Receipt Date: 20110513
  Transmission Date: 20111010
  Serious: Yes (Other)
  Sender: FDA-Public Use
  Company Number: GB-TEVA-280943ISR

PATIENT
  Sex: Female

DRUGS (2)
  1. PHENYTOIN [Suspect]
  2. CAPECITABINE [Suspect]

REACTIONS (2)
  - DRUG LEVEL INCREASED [None]
  - LETHARGY [None]
